FAERS Safety Report 18901122 (Version 1)
Quarter: 2021Q1

REPORT INFORMATION
  Report Type: Spontaneous
  Country: US (occurrence: US)
  Receive Date: 20210216
  Receipt Date: 20210216
  Transmission Date: 20210420
  Serious: Yes (Other)
  Sender: FDA-Public Use
  Company Number: US-GLAXOSMITHKLINE-USCH2021006325

PATIENT
  Sex: Male

DRUGS (1)
  1. SENSODYNE REPAIR AND PROTECT WHITENING [Suspect]
     Active Substance: STANNOUS FLUORIDE
     Indication: DENTAL CARE

REACTIONS (3)
  - Suspected counterfeit product [Unknown]
  - Chemical burn [Unknown]
  - Burn oral cavity [Unknown]
